FAERS Safety Report 15130454 (Version 2)
Quarter: 2018Q4

REPORT INFORMATION
  Report Type: Other
  Country: US (occurrence: US)
  Receive Date: 20180711
  Receipt Date: 20181002
  Transmission Date: 20190204
  Serious: Yes (Other)
  Sender: FDA-Public Use
  Company Number: US-INTERCEPT-PMOCA2018000872

PATIENT

DRUGS (2)
  1. URSODIOL. [Concomitant]
     Active Substance: URSODIOL
     Dosage: 300 MG, BID
     Route: 048
  2. OCALIVA [Suspect]
     Active Substance: OBETICHOLIC ACID
     Indication: PRIMARY BILIARY CHOLANGITIS
     Dosage: 5 MG, QD
     Route: 048
     Dates: start: 201804, end: 20180626

REACTIONS (7)
  - Feeling cold [Not Recovered/Not Resolved]
  - Hyperaesthesia [Unknown]
  - Somnolence [Unknown]
  - Transaminases increased [Unknown]
  - Night sweats [Unknown]
  - Jaundice [Unknown]
  - Pruritus [Unknown]

NARRATIVE: CASE EVENT DATE: 20180524
